FAERS Safety Report 22369432 (Version 1)
Quarter: 2023Q2

REPORT INFORMATION
  Report Type: Report from Study
  Country: US (occurrence: US)
  Receive Date: 20230526
  Receipt Date: 20230526
  Transmission Date: 20230721
  Serious: Yes (Other)
  Sender: FDA-Public Use
  Company Number: US-002147023-NVSC2023US116025

PATIENT
  Sex: Female

DRUGS (2)
  1. COSENTYX [Suspect]
     Active Substance: SECUKINUMAB
     Indication: Arthralgia
     Dosage: 300 MG, OTHER (2 PENS EVERY FOUR WEEKS)
     Route: 058
     Dates: start: 20220510
  2. COSENTYX [Suspect]
     Active Substance: SECUKINUMAB
     Indication: Skin exfoliation

REACTIONS (5)
  - Pain in extremity [Recovering/Resolving]
  - Arthralgia [Unknown]
  - Skin exfoliation [Unknown]
  - Incorrect dose administered [Unknown]
  - Product use in unapproved indication [Unknown]
